FAERS Safety Report 23590414 (Version 1)
Quarter: 2024Q1

REPORT INFORMATION
  Report Type: Spontaneous
  Country: US (occurrence: None)
  Receive Date: 20240301
  Receipt Date: 20240301
  Transmission Date: 20240409
  Serious: Yes (Hospitalization, Other)
  Sender: FDA-Public Use
  Company Number: None

PATIENT
  Age: 40 Year
  Sex: Female
  Weight: 92.7 kg

DRUGS (1)
  1. ELIQUIS [Suspect]
     Active Substance: APIXABAN
     Indication: Pulmonary embolism
     Dosage: OTHER QUANTITY : 1 TABLET(S);?FREQUENCY : TWICE A DAY;?
     Route: 048
     Dates: start: 20231125, end: 20240222

REACTIONS (5)
  - Menstrual disorder [None]
  - Menstrual clots [None]
  - Heavy menstrual bleeding [None]
  - Heart rate increased [None]
  - Vaginal haemorrhage [None]

NARRATIVE: CASE EVENT DATE: 20240221
